FAERS Safety Report 15404223 (Version 1)
Quarter: 2018Q3

REPORT INFORMATION
  Report Type: Spontaneous
  Country: US (occurrence: US)
  Receive Date: 20180919
  Receipt Date: 20180919
  Transmission Date: 20181010
  Serious: Yes (Hospitalization, Other)
  Sender: FDA-Public Use
  Company Number: US-SA-2018SA253060

PATIENT
  Age: 83 Year
  Sex: Female

DRUGS (1)
  1. LANTUS [Suspect]
     Active Substance: INSULIN GLARGINE
     Dosage: 17 IU, QD

REACTIONS (6)
  - Device operational issue [Unknown]
  - Heart rate decreased [Unknown]
  - Eye disorder [Unknown]
  - Lung neoplasm malignant [Unknown]
  - Oesophageal carcinoma [Unknown]
  - Cardiac disorder [Unknown]
